FAERS Safety Report 9404997 (Version 1)
Quarter: 2013Q3

REPORT INFORMATION
  Report Type: Spontaneous
  Country: US (occurrence: US)
  Receive Date: 20130717
  Receipt Date: 20130717
  Transmission Date: 20140515
  Serious: No
  Sender: FDA-Public Use
  Company Number: US-BRISTOL-MYERS SQUIBB COMPANY-18766634

PATIENT
  Age: 62 Year
  Sex: Male

DRUGS (1)
  1. YERVOY [Suspect]
     Dosage: SECOND INFUSION WAS 01-APR-2013

REACTIONS (3)
  - Constipation [Unknown]
  - Myalgia [Unknown]
  - Arthralgia [Unknown]
